FAERS Safety Report 9107164 (Version 5)
Quarter: 2013Q3

REPORT INFORMATION
  Report Type: Spontaneous
  Country: US (occurrence: US)
  Receive Date: 20130221
  Receipt Date: 20130829
  Transmission Date: 20140515
  Serious: Yes (Death, Life-Threatening, Hospitalization, Other)
  Sender: FDA-Public Use
  Company Number: US-CELGENEUS-163-21880-12121344

PATIENT
  Age: 87 Year
  Sex: Male
  Weight: 90 kg

DRUGS (26)
  1. REVLIMID [Suspect]
     Indication: MYELODYSPLASTIC SYNDROME
     Dosage: 10 MILLIGRAM
     Route: 048
     Dates: start: 20121116, end: 20121206
  2. REVLIMID [Suspect]
     Dosage: 5 MILLIGRAM
     Route: 048
     Dates: start: 20121214, end: 20121216
  3. VIDAZA [Suspect]
     Indication: ACUTE MYELOID LEUKAEMIA
     Dosage: 100 MILLIGRAM/MILLILITERS
     Route: 058
     Dates: start: 20130204, end: 20130219
  4. KLOR-CON [Concomitant]
     Indication: PRODUCT USED FOR UNKNOWN INDICATION
     Dosage: 10 MILLIEQUIVALENTS
     Route: 048
  5. FLAGYL [Concomitant]
     Indication: DIARRHOEA
     Route: 065
     Dates: start: 2012
  6. AMLODIPINE BESYLATE [Concomitant]
     Indication: PRODUCT USED FOR UNKNOWN INDICATION
     Dosage: 5 MILLIGRAM
     Route: 048
  7. ATORVASTATIN [Concomitant]
     Indication: PRODUCT USED FOR UNKNOWN INDICATION
     Dosage: 10 MILLIGRAM
     Route: 048
  8. BUTALBITAL-ACETAMINOPHEN-CAFFEINE [Concomitant]
     Indication: PRODUCT USED FOR UNKNOWN INDICATION
     Dosage: 50-325-40
     Route: 048
  9. DIGOXIN [Concomitant]
     Indication: PRODUCT USED FOR UNKNOWN INDICATION
     Dosage: 125 MICROGRAM
     Route: 048
  10. IBUPROFEN [Concomitant]
     Indication: PRODUCT USED FOR UNKNOWN INDICATION
     Dosage: 1600 MILLIGRAM
     Route: 048
  11. LASIX [Concomitant]
     Indication: PRODUCT USED FOR UNKNOWN INDICATION
     Dosage: 20 MILLIGRAM
     Route: 048
  12. ONDANSETRON HCL [Concomitant]
     Indication: PRODUCT USED FOR UNKNOWN INDICATION
     Route: 048
  13. TAMSULOSIN HCL [Concomitant]
     Indication: PRODUCT USED FOR UNKNOWN INDICATION
     Dosage: .4 MILLIGRAM
     Route: 048
  14. PLATELETS [Concomitant]
     Indication: PRODUCT USED FOR UNKNOWN INDICATION
     Dosage: 1 UNIT
     Route: 041
     Dates: start: 201302
  15. ACETAMINOPHEN [Concomitant]
     Indication: PRODUCT USED FOR UNKNOWN INDICATION
     Route: 048
  16. DIPHENOXYLATE-ATROPINE [Concomitant]
     Indication: PRODUCT USED FOR UNKNOWN INDICATION
     Dosage: 2.5-0.025MG
     Route: 048
  17. HYDROCODONE/ACETAMINOPHEN [Concomitant]
     Indication: PRODUCT USED FOR UNKNOWN INDICATION
     Dosage: 10-325MG
     Route: 048
  18. HYDROCODONE/ACETAMINOPHEN [Concomitant]
     Dosage: 5-325MG
     Route: 048
  19. HYDROCORTISONE ACE [Concomitant]
     Indication: PRODUCT USED FOR UNKNOWN INDICATION
     Route: 054
  20. POLYETHYLENE GLYCOL 3350 [Concomitant]
     Indication: PRODUCT USED FOR UNKNOWN INDICATION
     Dosage: 17 GRAM
     Route: 048
  21. RAMIPRIL [Concomitant]
     Indication: PRODUCT USED FOR UNKNOWN INDICATION
     Dosage: 10 MILLIGRAM
     Route: 048
  22. ZOLPIDEM TARTRATE [Concomitant]
     Indication: PRODUCT USED FOR UNKNOWN INDICATION
     Dosage: 5 MILLIGRAM
     Route: 048
  23. NSAID [Concomitant]
     Indication: PAIN MANAGEMENT
     Route: 065
  24. CYANOCOBALAMIN [Concomitant]
     Indication: PRODUCT USED FOR UNKNOWN INDICATION
     Dosage: 1 TABLET
     Route: 048
  25. LOTEMAX [Concomitant]
     Indication: PRODUCT USED FOR UNKNOWN INDICATION
     Dosage: 1 PERCENT
     Route: 047
  26. MECLIZINE [Concomitant]
     Indication: PRODUCT USED FOR UNKNOWN INDICATION
     Dosage: 50 PERCENT
     Route: 048

REACTIONS (10)
  - Acute myeloid leukaemia [Fatal]
  - Pulmonary embolism [Recovered/Resolved]
  - Sepsis [Unknown]
  - Drug intolerance [Recovering/Resolving]
  - Platelet count decreased [Recovered/Resolved]
  - Haemoglobin decreased [Not Recovered/Not Resolved]
  - Pancytopenia [Unknown]
  - Sepsis [Recovered/Resolved]
  - Haematocrit decreased [Not Recovered/Not Resolved]
  - Benign prostatic hyperplasia [Recovered/Resolved]
